FAERS Safety Report 8564744-2 (Version None)
Quarter: 2012Q3

REPORT INFORMATION
  Report Type: 
  Country: None (occurrence: None)
  Receive Date: 20120803
  Receipt Date: 20120726
  Transmission Date: 20120928
  Serious: Yes (Death)
  Sender: FDA-Public Use
  Company Number: US-MYLANLABS-2011S1004247

PATIENT
  Age: 55 Year
  Sex: Female
  Weight: 66.68 kg

DRUGS (14)
  1. EFFEXOR XR [Concomitant]
  2. GABAPENTIN [Concomitant]
  3. TEMAZEPAM [Concomitant]
  4. TEGRETOL [Concomitant]
  5. CARTIA XT [Concomitant]
  6. IBUPROFEN [Concomitant]
  7. FENTANYL [Suspect]
     Indication: PAIN
     Dosage: Q72H
     Route: 062
     Dates: end: 20090314
  8. FORMIN [Concomitant]
  9. HYDROCHLOROTHIAZIDE [Concomitant]
  10. PRAVASTATIN SODIUM [Concomitant]
  11. OMEPRAZOLE [Concomitant]
  12. OXYBUTYNIN [Concomitant]
  13. ALPRAZOLAM [Concomitant]
  14. CIPROFLOXACIN [Concomitant]

REACTIONS (2)
  - TOXICITY TO VARIOUS AGENTS [None]
  - OVERDOSE [None]
